FAERS Safety Report 6619931-7 (Version None)
Quarter: 2010Q1

REPORT INFORMATION
  Report Type: 
  Country: None (occurrence: None)
  Receive Date: 20100309
  Receipt Date: 20100303
  Transmission Date: 20100710
  Serious: Yes (Other)
  Sender: FDA-Public Use
  Company Number: DE-JNJFOC-20100301116

PATIENT
  Sex: Male

DRUGS (2)
  1. IMODIUM AKUT N [Suspect]
     Route: 048
  2. IMODIUM AKUT N [Suspect]
     Indication: IRRITABLE BOWEL SYNDROME
     Route: 048

REACTIONS (1)
  - DIVERTICULITIS [None]
